FAERS Safety Report 8273805-7 (Version None)
Quarter: 2012Q2

REPORT INFORMATION
  Report Type: 
  Country: None (occurrence: None)
  Receive Date: 20120409
  Receipt Date: 20120324
  Transmission Date: 20120825
  Serious: Yes (Other)
  Sender: FDA-Public Use
  Company Number: 2012AP000832

PATIENT
  Age: 45 Year
  Sex: Male

DRUGS (4)
  1. DEXAMETHASONE [Concomitant]
  2. TEMOZOLOMIDE [Concomitant]
  3. LEVETIRACETAM [Suspect]
     Indication: CONVULSION
     Dosage: 500 MG;BID; 3000 MG;QD
     Dates: start: 20110401
  4. LEVETIRACETAM [Suspect]
     Indication: CONVULSION
     Dosage: 500 MG;BID; 3000 MG;QD
     Dates: end: 20110501

REACTIONS (4)
  - RENAL FAILURE ACUTE [None]
  - ASTROCYTOMA [None]
  - LEUKOCYTURIA [None]
  - TUBULOINTERSTITIAL NEPHRITIS [None]
